FAERS Safety Report 11493705 (Version 1)
Quarter: 2015Q3

REPORT INFORMATION
  Report Type: Spontaneous
  Country: US (occurrence: None)
  Receive Date: 20150910
  Receipt Date: 20150910
  Transmission Date: 20151125
  Serious: No
  Sender: FDA-Public Use
  Company Number: None

PATIENT
  Age: 69 Year
  Sex: Female
  Weight: 72.58 kg

DRUGS (16)
  1. PREDNISONE. [Concomitant]
     Active Substance: PREDNISONE
  2. PLAQUENIL [Concomitant]
     Active Substance: HYDROXYCHLOROQUINE SULFATE
  3. TRAZODONE [Concomitant]
     Active Substance: TRAZODONE HYDROCHLORIDE
  4. B6 [Concomitant]
     Active Substance: PYRIDOXINE HYDROCHLORIDE
  5. SUCRALFATE. [Suspect]
     Active Substance: SUCRALFATE
     Indication: GASTROOESOPHAGEAL REFLUX DISEASE
     Route: 048
     Dates: start: 20150825, end: 20150907
  6. CALCIUM [Concomitant]
     Active Substance: CALCIUM
  7. SPIRNOLACTONE [Concomitant]
  8. TIZANIDINE. [Concomitant]
     Active Substance: TIZANIDINE
  9. DEXILANT [Concomitant]
     Active Substance: DEXLANSOPRAZOLE
  10. MORPHINE SULFATE XR [Concomitant]
  11. OMEGA 3 [Concomitant]
     Active Substance: OMEGA-3 FATTY ACIDS
  12. DULOXETINE. [Concomitant]
     Active Substance: DULOXETINE
  13. METOPROLOL [Concomitant]
     Active Substance: METOPROLOL
  14. POTASSIUM [Concomitant]
     Active Substance: POTASSIUM
  15. PROBIOTICS [Concomitant]
     Active Substance: PROBIOTICS NOS
  16. ORENCIA [Concomitant]
     Active Substance: ABATACEPT

REACTIONS (4)
  - Abdominal pain [None]
  - Abdominal distension [None]
  - Flatulence [None]
  - Small intestinal obstruction [None]

NARRATIVE: CASE EVENT DATE: 20150906
